FAERS Safety Report 10669867 (Version 3)
Quarter: 2015Q2

REPORT INFORMATION
  Report Type: Spontaneous
  Country: AR (occurrence: AR)
  Receive Date: 20141222
  Receipt Date: 20150420
  Transmission Date: 20150821
  Serious: Yes (Other)
  Sender: FDA-Public Use
  Company Number: ALCN2014AR007081

PATIENT

DRUGS (2)
  1. VIGAMOX [Suspect]
     Active Substance: MOXIFLOXACIN HYDROCHLORIDE
     Indication: POSTOPERATIVE CARE
  2. VIGAMOX [Suspect]
     Active Substance: MOXIFLOXACIN HYDROCHLORIDE
     Indication: PREOPERATIVE CARE
     Dosage: 1 DF, PRN
     Route: 047
     Dates: start: 20141215, end: 20141216

REACTIONS (4)
  - Eye burns [Unknown]
  - Ulcerative keratitis [Unknown]
  - Foreign body sensation in eyes [Unknown]
  - Conjunctival ulcer [Unknown]

NARRATIVE: CASE EVENT DATE: 20141215
